FAERS Safety Report 4681090-8 (Version None)
Quarter: 2005Q2

REPORT INFORMATION
  Report Type: 
  Country: None (occurrence: None)
  Receive Date: 20050601
  Receipt Date: 20050517
  Transmission Date: 20051028
  Serious: Yes (Other)
  Sender: FDA-Public Use
  Company Number: USA050598282

PATIENT
  Age: 73 Year
  Sex: Male

DRUGS (2)
  1. HUMALOG [Suspect]
     Indication: DIABETES MELLITUS
     Dates: start: 19850101
  2. HUMULIN N [Suspect]
     Indication: DIABETES MELLITUS
     Dosage: 40 U/5 DAY
     Dates: start: 19850101

REACTIONS (6)
  - CATARACT [None]
  - ECONOMIC PROBLEM [None]
  - EYE DISORDER [None]
  - EYE HAEMORRHAGE [None]
  - SHOCK HYPOGLYCAEMIC [None]
  - VISUAL DISTURBANCE [None]
